FAERS Safety Report 9821156 (Version 1)
Quarter: 2014Q1

REPORT INFORMATION
  Report Type: Spontaneous
  Country: US (occurrence: US)
  Receive Date: 20140116
  Receipt Date: 20140116
  Transmission Date: 20141002
  Serious: Yes (Hospitalization, Other)
  Sender: FDA-Public Use
  Company Number: US-BAYER-2014-006061

PATIENT
  Age: 67 Year
  Sex: Female
  Weight: 73 kg

DRUGS (5)
  1. BAYER GENUINE ASPIRIN ORIGINAL STRENGTH [Suspect]
     Dosage: UNK
     Route: 048
     Dates: end: 201312
  2. FUROSEMIDE [Suspect]
     Route: 048
  3. FERROUS SULFATE [Suspect]
  4. TRAMADOL [Suspect]
     Route: 048
  5. PANTOPRAZOLE [Suspect]
     Route: 048

REACTIONS (2)
  - Rectal haemorrhage [Unknown]
  - Gastric haemorrhage [Unknown]
